FAERS Safety Report 8870754 (Version 1)
Quarter: 2012Q4

REPORT INFORMATION
  Report Type: 
  Country: US (occurrence: US)
  Receive Date: 20121026
  Receipt Date: 20121026
  Transmission Date: 20130627
  Serious: No
  Sender: FDA-Public Use
  Company Number: US-AMGEN-USASP2012046883

PATIENT
  Sex: Female

DRUGS (19)
  1. ENBREL [Suspect]
     Indication: PRODUCT USED FOR UNKNOWN INDICATION
     Dosage: 50 mg, qwk
     Route: 058
  2. AMLODIPINE [Concomitant]
     Dosage: 5 mg, UNK
  3. METHOTREXATE [Concomitant]
     Dosage: 2.5 mg, UNK
  4. PREDNISONE [Concomitant]
     Dosage: 1 mg, UNK
  5. FOLIC ACID [Concomitant]
     Dosage: 1 mg, UNK
  6. MAGNESIUM [Concomitant]
     Dosage: 30 mg, UNK
  7. METOPROLOL [Concomitant]
     Dosage: 25 mg, UNK
  8. PRILOSEC                           /00661201/ [Concomitant]
     Dosage: 10 mg, UNK
  9. ASPIRIN [Concomitant]
     Dosage: 81 mg, UNK
  10. SULFASALAZIN [Concomitant]
     Dosage: 500 mg, UNK
  11. CALCIUM CITRAMATE [Concomitant]
     Dosage: 200 mg, UNK
  12. ZETIA [Concomitant]
     Dosage: 10 mg, UNK
  13. ZINC [Concomitant]
     Dosage: 30 mg, UNK
  14. MULTIVITAMIN                       /00097801/ [Concomitant]
     Dosage: UNK
  15. CRANBERRY                          /01512301/ [Concomitant]
     Dosage: 200 mg, UNK
  16. VITAMIN B [Concomitant]
     Dosage: (50 Tablets)
  17. NIACIN [Concomitant]
     Dosage: 500 mg, UNK
  18. VITAMIN D+A [Concomitant]
     Dosage: UNK
  19. MELATONIN [Concomitant]
     Dosage: 1 mg, UNK

REACTIONS (2)
  - Localised infection [Unknown]
  - Drug ineffective [Unknown]
